FAERS Safety Report 21897228 (Version 1)
Quarter: 2023Q1

REPORT INFORMATION
  Report Type: Spontaneous
  Country: US (occurrence: None)
  Receive Date: 20230120
  Receipt Date: 20230120
  Transmission Date: 20230417
  Serious: No
  Sender: FDA-Public Use
  Company Number: None

PATIENT
  Sex: Male

DRUGS (1)
  1. HUMIRA [Suspect]
     Active Substance: ADALIMUMAB
     Indication: Hidradenitis
     Dosage: 160 MG ON DAY, 1, THEN 80MG ON DAY 15.?
     Route: 058

REACTIONS (3)
  - Drug dose omission by device [None]
  - Accidental exposure to product [None]
  - Injection site discharge [None]
